FAERS Safety Report 4264588-6 (Version None)
Quarter: 2004Q1

REPORT INFORMATION
  Report Type: 
  Country: None (occurrence: None)
  Receive Date: 20040106
  Receipt Date: 20030930
  Transmission Date: 20041129
  Serious: Yes (Hospitalization)
  Sender: FDA-Public Use
  Company Number: JP-ROCHE-348038

PATIENT
  Age: 59 Year
  Sex: Male

DRUGS (4)
  1. PANALDINE [Suspect]
     Route: 048
     Dates: start: 20030804, end: 20030830
  2. ASPIRIN [Concomitant]
     Route: 048
     Dates: start: 20030804
  3. SIGMART [Concomitant]
     Route: 048
     Dates: start: 20030804
  4. ENALAPRIL MALEATE [Concomitant]
     Route: 048
     Dates: start: 20030804

REACTIONS (7)
  - ANOREXIA [None]
  - DRUG ERUPTION [None]
  - GASTRIC ULCER [None]
  - HEPATIC FUNCTION ABNORMAL [None]
  - JAUNDICE [None]
  - MALAISE [None]
  - PRURITUS [None]
